FAERS Safety Report 7009196-9 (Version None)
Quarter: 2010Q3

REPORT INFORMATION
  Report Type: 
  Country: None (occurrence: None)
  Receive Date: 20100923
  Receipt Date: 20100914
  Transmission Date: 20110219
  Serious: Yes (Other)
  Sender: FDA-Public Use
  Company Number: JP-SANOFI-AVENTIS-2010SA055111

PATIENT
  Age: 61 Year
  Sex: Female

DRUGS (3)
  1. ELPLAT [Suspect]
     Indication: LARGE INTESTINE CARCINOMA
     Route: 041
  2. AVASTIN [Suspect]
     Indication: LARGE INTESTINE CARCINOMA
     Route: 041
     Dates: start: 20100810, end: 20100831
  3. XELODA [Suspect]
     Indication: LARGE INTESTINE CARCINOMA
     Route: 048

REACTIONS (1)
  - SILENT MYOCARDIAL INFARCTION [None]
